FAERS Safety Report 16763067 (Version 1)
Quarter: 2019Q3

REPORT INFORMATION
  Report Type: Spontaneous
  Country: IT (occurrence: IT)
  Receive Date: 20190902
  Receipt Date: 20190902
  Transmission Date: 20191005
  Serious: Yes (Other)
  Sender: FDA-Public Use
  Company Number: IT-SUN PHARMACEUTICAL INDUSTRIES LTD-2019RR-219159

PATIENT
  Age: 48 Year
  Sex: Male

DRUGS (4)
  1. EN [Suspect]
     Active Substance: DELORAZEPAM
     Indication: CONVERSION DISORDER
     Dosage: 3 DOSAGE FORM, DAILY
     Route: 048
     Dates: start: 20190718
  2. LYRICA [Concomitant]
     Active Substance: PREGABALIN
     Indication: ANXIETY
     Dosage: ()
     Route: 065
  3. ABILIFY 5 MG TABLETS [Concomitant]
     Indication: CONVERSION DISORDER
     Dosage: ()
     Route: 065
  4. OLANZAPINE. [Suspect]
     Active Substance: OLANZAPINE
     Indication: CONVERSION DISORDER
     Dosage: 2 DOSAGE FORM, DAILY
     Route: 048
     Dates: start: 20190718

REACTIONS (7)
  - Eye pain [Unknown]
  - Anxiety [Unknown]
  - Muscular weakness [Unknown]
  - Aggression [Unknown]
  - Oropharyngeal pain [Unknown]
  - Bradyphrenia [Unknown]
  - Malaise [Unknown]

NARRATIVE: CASE EVENT DATE: 20190722
